FAERS Safety Report 6113117-0 (Version None)
Quarter: 2009Q1

REPORT INFORMATION
  Report Type: 
  Country: None (occurrence: None)
  Receive Date: 20090312
  Receipt Date: 20090309
  Transmission Date: 20090719
  Serious: Yes (Hospitalization)
  Sender: FDA-Public Use
  Company Number: DE-MERCK-0903DEU00113

PATIENT
  Age: 83 Year
  Sex: Female
  Weight: 72 kg

DRUGS (7)
  1. COZAAR [Suspect]
     Indication: HYPERTENSION
     Route: 048
     Dates: start: 20080501
  2. ALLOPURINOL [Concomitant]
     Indication: HYPERURICAEMIA
     Route: 048
  3. METOPROLOL SUCCINATE [Concomitant]
     Indication: HYPERTENSION
     Route: 048
     Dates: end: 20090101
  4. METOPROLOL SUCCINATE [Concomitant]
     Route: 048
     Dates: start: 20090101
  5. INSULIN LISPRO, BIPHASIC ISOPHANE [INJECTION] [Concomitant]
     Indication: TYPE 2 DIABETES MELLITUS
     Route: 058
     Dates: start: 20030101, end: 20090119
  6. PANTOPRAZOLE SODIUM [Concomitant]
     Route: 048
     Dates: start: 20080301
  7. ZOCOR [Concomitant]
     Indication: HYPERCHOLESTEROLAEMIA
     Route: 048

REACTIONS (1)
  - TACHYARRHYTHMIA [None]
